FAERS Safety Report 10128648 (Version 1)
Quarter: 2014Q2

REPORT INFORMATION
  Report Type: Other
  Country: GB (occurrence: GB)
  Receive Date: 20140428
  Receipt Date: 20140428
  Transmission Date: 20141212
  Serious: Yes (Disabling)
  Sender: FDA-Public Use
  Company Number: GB-SUN PHARMACEUTICAL INDUSTRIES LTD-2014SUN00890

PATIENT
  Age: 61 Year
  Sex: Female
  Weight: 86 kg

DRUGS (7)
  1. VENLAFAXINE HYDROCHLORIDE 37.5MG TABLET [Suspect]
     Indication: PRODUCT USED FOR UNKNOWN INDICATION
     Route: 065
     Dates: start: 20140226
  2. AMOXICILLIN [Concomitant]
     Dates: start: 20140102, end: 20140109
  3. GABAPENTIN [Concomitant]
     Dates: start: 20140211, end: 20140311
  4. KLIOVANCE [Concomitant]
     Dates: start: 20140211, end: 20140311
  5. LANSOPRAZOLE [Concomitant]
     Dates: start: 20131212, end: 20140109
  6. PHOLCODINE [Concomitant]
     Dates: start: 20140102, end: 20140112
  7. SALBUTAMOL [Concomitant]
     Dates: start: 20140102, end: 20140130

REACTIONS (3)
  - Eye swelling [Recovered/Resolved]
  - Dyspnoea [Recovered/Resolved]
  - Tremor [Recovered/Resolved]
